FAERS Safety Report 21445677 (Version 3)
Quarter: 2022Q4

REPORT INFORMATION
  Report Type: Spontaneous
  Country: BR (occurrence: BR)
  Receive Date: 20221012
  Receipt Date: 20221213
  Transmission Date: 20230112
  Serious: Yes (Other)
  Sender: FDA-Public Use
  Company Number: BR-AMERICAN REGENT INC-2022002926

PATIENT
  Sex: Female
  Weight: 69 kg

DRUGS (2)
  1. VENOFER [Suspect]
     Active Substance: IRON SUCROSE
     Indication: Anaemia
     Dosage: UNK
     Dates: start: 2020, end: 2020
  2. VENOFER [Suspect]
     Active Substance: IRON SUCROSE
     Dosage: 200 MG, 2 IN 1 WK
     Dates: start: 2022, end: 202204

REACTIONS (5)
  - Vein rupture [Recovered/Resolved]
  - Vascular fragility [Not Recovered/Not Resolved]
  - Asthenia [Not Recovered/Not Resolved]
  - Product dose omission issue [Unknown]
  - Product substitution issue [Unknown]

NARRATIVE: CASE EVENT DATE: 20200101
